FAERS Safety Report 4952409-5 (Version None)
Quarter: 2006Q1

REPORT INFORMATION
  Report Type: 
  Country: None (occurrence: None)
  Receive Date: 20060323
  Receipt Date: 20060313
  Transmission Date: 20060701
  Serious: Yes (Hospitalization)
  Sender: FDA-Public Use
  Company Number: FR-BRISTOL-MYERS SQUIBB COMPANY-13313960

PATIENT
  Age: 82 Year
  Sex: Male

DRUGS (8)
  1. PERFALGAN IV [Suspect]
     Route: 042
     Dates: start: 20060116, end: 20060201
  2. MUCOMYST [Suspect]
     Dates: start: 20060111
  3. OFLOCET [Suspect]
     Dates: start: 20060118, end: 20060208
  4. PREVISCAN [Concomitant]
     Dosage: DURATION OF THERAPY:  ^LONG TERM^
  5. LOGIRENE [Concomitant]
     Dosage: DURATION OF THERAPY:  ^LONG TERM^
  6. FLECAINIDE ACETATE [Concomitant]
     Dosage: DURATION OF THERAPY:  ^LONG TERM^
  7. JOSIR [Concomitant]
     Dosage: DURATION OF THERAPY:  ^LONG TERM^
  8. HYPERIUM [Concomitant]

REACTIONS (1)
  - HEPATIC ENZYME INCREASED [None]
